FAERS Safety Report 4427395-7 (Version None)
Quarter: 2004Q3

REPORT INFORMATION
  Report Type: 
  Country: None (occurrence: None)
  Receive Date: 20040812
  Receipt Date: 20040728
  Transmission Date: 20050211
  Serious: Yes (Hospitalization)
  Sender: FDA-Public Use
  Company Number: 03P-062-0207739-00

PATIENT
  Age: 59 Year
  Sex: Male
  Weight: 110 kg

DRUGS (9)
  1. HUMIRA [Suspect]
     Indication: RHEUMATOID ARTHRITIS
     Dosage: 1 IN 2 WK, SUBCUTANEOUS
     Route: 058
     Dates: start: 20021205, end: 20030102
  2. INNOMET [Concomitant]
  3. ALLOPURINOL [Concomitant]
  4. ATORVASTATIN CALCIUM [Concomitant]
  5. RAMIPRIL [Concomitant]
  6. NOROCHIGUL [Concomitant]
  7. METHOTREXATE SODIUM [Concomitant]
  8. LEFLUNOMIDE [Concomitant]
  9. PREDNISOLONE [Concomitant]

REACTIONS (16)
  - ANOREXIA [None]
  - ARTHRALGIA [None]
  - ASTHENIA [None]
  - ATRIAL FIBRILLATION [None]
  - BACK PAIN [None]
  - CARDIOMYOPATHY [None]
  - CHILLS [None]
  - FATIGUE [None]
  - GASTROENTERITIS BACTERIAL [None]
  - GASTROINTESTINAL HAEMORRHAGE [None]
  - HAEMOGLOBIN DECREASED [None]
  - HEART RATE INCREASED [None]
  - HYPERTENSION [None]
  - INFLAMMATION [None]
  - MELAENA [None]
  - TACHYARRHYTHMIA [None]
